FAERS Safety Report 9924818 (Version 1)
Quarter: 2014Q1

REPORT INFORMATION
  Report Type: Spontaneous
  Country: US (occurrence: None)
  Receive Date: 20140224
  Receipt Date: 20140224
  Transmission Date: 20141002
  Serious: Yes (Other)
  Sender: FDA-Public Use
  Company Number: None

PATIENT
  Age: 13 Year
  Sex: Male
  Weight: 38.56 kg

DRUGS (3)
  1. PRILOSEC [Suspect]
     Indication: GASTROOESOPHAGEAL REFLUX DISEASE
     Dosage: 2 PILLS ONCE DAILY
     Route: 048
     Dates: start: 20131127, end: 20140103
  2. PRILOSEC [Suspect]
     Indication: GASTROOESOPHAGEAL REFLUX DISEASE
     Dosage: 2 PILLS ONCE DAILY
     Route: 048
     Dates: start: 20131127, end: 20140103
  3. PRILOSEC [Suspect]
     Indication: IRRITABLE BOWEL SYNDROME
     Dosage: 2 PILLS ONCE DAILY
     Route: 048
     Dates: start: 20131127, end: 20140103

REACTIONS (5)
  - Anxiety [None]
  - Depression [None]
  - Insomnia [None]
  - Thinking abnormal [None]
  - Self-injurious ideation [None]
